FAERS Safety Report 4636238-8 (Version None)
Quarter: 2005Q2

REPORT INFORMATION
  Report Type: 
  Country: None (occurrence: None)
  Receive Date: 20050413
  Receipt Date: 20050413
  Transmission Date: 20051028
  Serious: Yes (Other)
  Sender: FDA-Public Use
  Company Number: None

PATIENT
  Age: 40 Year
  Sex: Female
  Weight: 81.6475 kg

DRUGS (8)
  1. BEXTRA [Suspect]
     Indication: CONNECTIVE TISSUE DISORDER
     Dosage: 10 MG  EVERY DAY   ORAL
     Route: 048
     Dates: start: 20040801, end: 20050411
  2. PLAQUENIL [Concomitant]
  3. VERAPAMIL [Concomitant]
  4. DYAZIDE [Concomitant]
  5. FERROUS SULFATE TAB [Concomitant]
  6. ASPIRIN [Concomitant]
  7. MERIDIA [Concomitant]
  8. ALLEGRA [Concomitant]

REACTIONS (9)
  - ACTIVITIES OF DAILY LIVING IMPAIRED [None]
  - ARTHRALGIA [None]
  - INSOMNIA [None]
  - MALAISE [None]
  - MEDICATION ERROR [None]
  - MOBILITY DECREASED [None]
  - MYALGIA [None]
  - PAIN [None]
  - PHARMACEUTICAL PRODUCT COMPLAINT [None]
